FAERS Safety Report 25343623 (Version 1)
Quarter: 2025Q2

REPORT INFORMATION
  Report Type: Spontaneous
  Country: US (occurrence: None)
  Receive Date: 20250521
  Receipt Date: 20250521
  Transmission Date: 20250716
  Serious: Yes (Other)
  Sender: FDA-CTU
  Company Number: None

PATIENT
  Age: 73 Year
  Sex: Female

DRUGS (2)
  1. BIOFREEZE PAIN RELIEVING [Suspect]
     Active Substance: MENTHOL
     Indication: Back pain
     Route: 061
     Dates: start: 20250518, end: 20250518
  2. KEPPRA [Concomitant]
     Active Substance: LEVETIRACETAM

REACTIONS (2)
  - Scar [None]
  - Thermal burn [None]

NARRATIVE: CASE EVENT DATE: 20250519
